FAERS Safety Report 9670889 (Version 4)
Quarter: 2014Q3

REPORT INFORMATION
  Report Type: Report from Study
  Country: BR (occurrence: BR)
  Receive Date: 20131106
  Receipt Date: 20140916
  Transmission Date: 20150326
  Serious: Yes (Hospitalization, Other)
  Sender: FDA-Public Use
  Company Number: PHHY2013BR094916

PATIENT
  Sex: Male
  Weight: 89 kg

DRUGS (9)
  1. DOSTINEX [Suspect]
     Active Substance: CABERGOLINE
     Dosage: UNK UKN, UNK
  2. COUMADIN [Concomitant]
     Active Substance: WARFARIN SODIUM
     Indication: ANTICOAGULANT THERAPY
     Dosage: 1 MG, DAILY
     Dates: start: 2009
  3. SANDOSTATIN LAR DEPOT [Suspect]
     Active Substance: OCTREOTIDE ACETATE
     Indication: ACROMEGALY
     Dosage: 30 MG, QMO
     Route: 030
     Dates: start: 2004, end: 2005
  4. SANDOSTATIN LAR DEPOT [Suspect]
     Active Substance: OCTREOTIDE ACETATE
     Indication: PITUITARY TUMOUR BENIGN
     Dosage: 20 MG, QMO
     Route: 030
     Dates: start: 2005
  5. RIVOTRIL [Concomitant]
     Active Substance: CLONAZEPAM
     Indication: INSOMNIA
     Dosage: UNK UKN, UNK
  6. RIVOTRIL [Concomitant]
     Active Substance: CLONAZEPAM
     Dosage: 10 DRP (5 MG), DAILY
     Route: 048
  7. COUMADIN [Concomitant]
     Active Substance: WARFARIN SODIUM
     Indication: HEART VALVE INCOMPETENCE
     Dosage: 2.5 MG, DAILY
     Dates: start: 2009
  8. RIVOTRIL [Concomitant]
     Active Substance: CLONAZEPAM
     Indication: SLEEP APNOEA SYNDROME
     Dosage: 3 DRP (5 MG), DAILY
     Route: 048
     Dates: start: 2002
  9. SERTRALINE [Concomitant]
     Active Substance: SERTRALINE HYDROCHLORIDE
     Indication: STRESS
     Dosage: 1 DF, DAILY
     Dates: start: 2004

REACTIONS (11)
  - Mitral valve disease [Unknown]
  - Goitre [Recovered/Resolved]
  - Eye colour change [Recovered/Resolved]
  - Fatigue [Recovered/Resolved]
  - Bradycardia [Recovered/Resolved]
  - Madarosis [Recovered/Resolved]
  - Insulin-like growth factor increased [Recovered/Resolved]
  - Arrhythmia [Recovered/Resolved]
  - Tachycardia [Recovered/Resolved]
  - Pulmonary embolism [Recovered/Resolved]
  - Aortic dilatation [Unknown]

NARRATIVE: CASE EVENT DATE: 2007
